FAERS Safety Report 20144800 (Version 2)
Quarter: 2021Q4

REPORT INFORMATION
  Report Type: Spontaneous
  Country: PL (occurrence: PL)
  Receive Date: 20211203
  Receipt Date: 20211210
  Transmission Date: 20220303
  Serious: No
  Sender: FDA-Public Use
  Company Number: PL-SUN PHARMACEUTICAL INDUSTRIES LTD-2021RR-318199

PATIENT
  Age: 47 Year
  Sex: Female

DRUGS (17)
  1. OLANZAPINE [Suspect]
     Active Substance: OLANZAPINE
     Indication: Product used for unknown indication
     Dosage: 5 MILLIGRAM, DAILY
     Route: 065
     Dates: start: 20211023
  2. PREGABALIN [Suspect]
     Active Substance: PREGABALIN
     Indication: Anxiety
     Dosage: 75 MILLIGRAM, UNK
     Route: 065
  3. RISPERIDONE [Suspect]
     Active Substance: RISPERIDONE
     Indication: Psychomotor retardation
     Dosage: 6 MILLIGRAM, DAILY
     Route: 065
  4. RISPERIDONE [Suspect]
     Active Substance: RISPERIDONE
     Dosage: 2 MG, DAILY
     Route: 065
  5. RISPERIDONE [Suspect]
     Active Substance: RISPERIDONE
     Dosage: 5 MG, DAILY
     Route: 065
  6. LAMOTRIGINE [Suspect]
     Active Substance: LAMOTRIGINE
     Indication: Mood swings
     Dosage: 50 MILLIGRAM, DAILY
     Route: 065
     Dates: start: 20200616
  7. LAMOTRIGINE [Suspect]
     Active Substance: LAMOTRIGINE
     Dosage: 100 MG, DAILY
     Route: 065
     Dates: start: 20200616
  8. HALOPERIDOL [Suspect]
     Active Substance: HALOPERIDOL
     Indication: Abnormal behaviour
     Dosage: UNK UNK, UNKNOWN
     Route: 048
  9. HALOPERIDOL [Suspect]
     Active Substance: HALOPERIDOL
     Dosage: UNK UNK, UNKNOWN
     Route: 030
  10. LURASIDONE [Suspect]
     Active Substance: LURASIDONE
     Indication: Schizophrenia
     Dosage: 37.5 MILLIGRAM, UNK
     Route: 065
  11. ARIPIPRAZOLE [Suspect]
     Active Substance: ARIPIPRAZOLE
     Indication: Psychotic symptom
     Dosage: 10 MILLIGRAM, DAILY
     Route: 065
     Dates: start: 20201120
  12. SERTRALINE [Suspect]
     Active Substance: SERTRALINE HYDROCHLORIDE
     Indication: Depression
     Dosage: 150 MILLIGRAM, DAILY
     Route: 065
  13. SERTRALINE [Suspect]
     Active Substance: SERTRALINE HYDROCHLORIDE
     Indication: Anxiety
     Dosage: 100 MG, DAILY
     Route: 065
  14. SERTRALINE [Suspect]
     Active Substance: SERTRALINE HYDROCHLORIDE
     Dosage: 50 MG, DAILY
     Route: 065
  15. PROPRANOLOL [Suspect]
     Active Substance: PROPRANOLOL HYDROCHLORIDE
     Indication: Product used for unknown indication
     Dosage: UNK, UNKNOWN
     Route: 065
  16. BIPERIDEN [Suspect]
     Active Substance: BIPERIDEN
     Indication: Extrapyramidal disorder
     Dosage: 6 MILLIGRAM, DAILY
     Route: 048
  17. DIAZEPAM [Suspect]
     Active Substance: DIAZEPAM
     Indication: Product used for unknown indication
     Dosage: 5 MILLIGRAM, UNK
     Route: 065

REACTIONS (4)
  - Flatulence [Recovered/Resolved]
  - Negative symptoms in schizophrenia [Recovered/Resolved]
  - Weight increased [Recovered/Resolved]
  - Constipation [Recovered/Resolved]
